FAERS Safety Report 8165484-4 (Version None)
Quarter: 2012Q1

REPORT INFORMATION
  Report Type: 
  Country: None (occurrence: None)
  Receive Date: 20120227
  Receipt Date: 20111221
  Transmission Date: 20120608
  Serious: No
  Sender: FDA-Public Use
  Company Number: US-MYLANLABS-2011S1026202

PATIENT
  Age: 72 Year
  Sex: Male

DRUGS (3)
  1. METOPROLOL TARTRATE [Suspect]
     Indication: ATRIAL FIBRILLATION
     Route: 048
     Dates: start: 20110601
  2. EXFORGE [Concomitant]
     Indication: BLOOD PRESSURE
  3. COUMADIN [Concomitant]
     Indication: ANTIPLATELET THERAPY

REACTIONS (5)
  - LOSS OF LIBIDO [None]
  - DYSPNOEA EXERTIONAL [None]
  - EJACULATION DELAYED [None]
  - ERECTILE DYSFUNCTION [None]
  - PENIS DISORDER [None]
